FAERS Safety Report 8421430-7 (Version None)
Quarter: 2012Q2

REPORT INFORMATION
  Report Type: 
  Country: None (occurrence: None)
  Receive Date: 20120608
  Receipt Date: 20120605
  Transmission Date: 20120825
  Serious: Yes (Other)
  Sender: FDA-Public Use
  Company Number: PHHY2012BR048371

PATIENT
  Sex: Male

DRUGS (2)
  1. EXFORGE [Suspect]
     Dosage: 1 DF, (VALS 320 MG, AMLO 10 MG), BID (1 TABLET IN MORNING AND 1 IN EVENING)
     Route: 048
  2. EXFORGE [Suspect]
     Dosage: 0.5 DF, (VALS 320 MG, AMLO 10 MG) A DAY
     Route: 048

REACTIONS (2)
  - WRONG TECHNIQUE IN DRUG USAGE PROCESS [None]
  - INFARCTION [None]
